FAERS Safety Report 14053396 (Version 1)
Quarter: 2017Q4

REPORT INFORMATION
  Report Type: Spontaneous
  Country: US (occurrence: US)
  Receive Date: 20171006
  Receipt Date: 20171006
  Transmission Date: 20180321
  Serious: No
  Sender: FDA-Public Use
  Company Number: US-JNJFOC-20170918820

PATIENT
  Sex: Male

DRUGS (1)
  1. INVEGA SUSTENNA [Suspect]
     Active Substance: PALIPERIDONE PALMITATE
     Indication: HALLUCINATION, AUDITORY
     Route: 030
     Dates: start: 201606, end: 201704

REACTIONS (3)
  - Scrotal disorder [Not Recovered/Not Resolved]
  - Erectile dysfunction [Recovering/Resolving]
  - Penile size reduced [Not Recovered/Not Resolved]

NARRATIVE: CASE EVENT DATE: 2016
